FAERS Safety Report 10678568 (Version 1)
Quarter: 2014Q4

REPORT INFORMATION
  Report Type: Spontaneous
  Country: ES (occurrence: ES)
  Receive Date: 20141229
  Receipt Date: 20141229
  Transmission Date: 20150529
  Serious: Yes (Other)
  Sender: FDA-Public Use
  Company Number: ES-SA-2014SA175502

PATIENT
  Age: 57 Year
  Sex: Female

DRUGS (1)
  1. RIFINAH [Suspect]
     Active Substance: ISONIAZID\RIFAMPIN
     Route: 048
     Dates: start: 20141107, end: 20141114

REACTIONS (2)
  - Arthritis infective [Unknown]
  - Drug administration error [Unknown]

NARRATIVE: CASE EVENT DATE: 20141114
